FAERS Safety Report 5912316-8 (Version None)
Quarter: 2008Q4

REPORT INFORMATION
  Report Type: 
  Country: None (occurrence: None)
  Receive Date: 20081008
  Receipt Date: 20080930
  Transmission Date: 20090506
  Serious: Yes (Hospitalization, Other)
  Sender: FDA-Public Use
  Company Number: US-MERCK-0805USA00701

PATIENT
  Age: 56 Year
  Sex: Female

DRUGS (4)
  1. FOSAMAX [Suspect]
     Indication: OSTEOPOROSIS
     Route: 048
     Dates: start: 19950101, end: 20050401
  2. INSULIN [Concomitant]
     Route: 065
     Dates: start: 19630101
  3. RALOXIFENE HYDROCHLORIDE [Concomitant]
     Route: 065
     Dates: start: 19980101
  4. SYNTHROID [Concomitant]
     Route: 065

REACTIONS (23)
  - ARTHROPATHY [None]
  - BACK DISORDER [None]
  - BONE DISORDER [None]
  - CARDIAC DISORDER [None]
  - COLONOSCOPY ABNORMAL [None]
  - CORONARY ARTERY DISEASE [None]
  - DIABETES MELLITUS INADEQUATE CONTROL [None]
  - DIZZINESS [None]
  - DYSPEPSIA [None]
  - FOREIGN BODY TRAUMA [None]
  - GINGIVITIS [None]
  - HAEMANGIOMA [None]
  - HERPES ZOSTER [None]
  - HYPOGLYCAEMIA [None]
  - LUNG INJURY [None]
  - MUSCULOSKELETAL CHEST PAIN [None]
  - NON-HODGKIN'S LYMPHOMA [None]
  - ORAL HERPES [None]
  - ORAL INFECTION [None]
  - OSTEONECROSIS [None]
  - SUPRAVENTRICULAR EXTRASYSTOLES [None]
  - TOOTH ABSCESS [None]
  - VENTRICULAR EXTRASYSTOLES [None]
